FAERS Safety Report 8930600 (Version 1)
Quarter: 2012Q4

REPORT INFORMATION
  Report Type: 
  Country: JP (occurrence: JP)
  Receive Date: 20121128
  Receipt Date: 20121128
  Transmission Date: 20130627
  Serious: Yes (Hospitalization, Other)
  Sender: FDA-Public Use
  Company Number: JP-AMGEN-JPNSP2012033155

PATIENT
  Age: 78 Year
  Sex: Male

DRUGS (8)
  1. ENBREL [Suspect]
     Indication: RHEUMATOID ARTHRITIS
     Dosage: 50 mg, weekly
     Route: 058
     Dates: start: 20120404, end: 20120425
  2. RHEUMATREX                         /00113801/ [Concomitant]
     Indication: RHEUMATOID ARTHRITIS
     Dosage: 12 mg, weekly
     Route: 048
     Dates: start: 20111206, end: 20120426
  3. PREDONINE                          /00016201/ [Concomitant]
     Indication: RHEUMATOID ARTHRITIS
     Dosage: 12.5 mg, qd
     Route: 048
     Dates: start: 20120110, end: 20120416
  4. PREDONINE                          /00016201/ [Concomitant]
     Dosage: 10 mg, 1x/day
     Route: 048
     Dates: start: 20120417
  5. LANSOPRAZOLE [Concomitant]
     Indication: GASTRIC ULCER
     Dosage: 30 mg, 1x/day
     Route: 048
     Dates: start: 20100623
  6. BAKTAR [Concomitant]
     Indication: PROPHYLAXIS
     Dosage: 1 DF, 1x/day
     Route: 048
     Dates: start: 20110406
  7. SITAGLIPTIN PHOSPHATE [Concomitant]
     Indication: DIABETES MELLITUS
     Dosage: 50 mg, 1x/day
     Route: 048
     Dates: start: 20110406
  8. LEUCOVORIN /00566701/ [Concomitant]
     Indication: PROPHYLAXIS
     Dosage: 5 mg, weekly
     Route: 048
     Dates: start: 20110713, end: 20120426

REACTIONS (7)
  - Pyrexia [Recovering/Resolving]
  - Hypersensitivity [Unknown]
  - Injection site reaction [Unknown]
  - Angioedema [Recovered/Resolved]
  - Injection site erythema [Unknown]
  - Injection site pain [Unknown]
  - Injection site induration [Unknown]
